FAERS Safety Report 6918227-3 (Version None)
Quarter: 2010Q3

REPORT INFORMATION
  Report Type: 
  Country: None (occurrence: None)
  Receive Date: 20100811
  Receipt Date: 20100809
  Transmission Date: 20110219
  Serious: Yes (Hospitalization, Other)
  Sender: FDA-Public Use
  Company Number: US-ASTRAZENECA-2007UW24326

PATIENT
  Age: 38 Year
  Sex: Male
  Weight: 89.8 kg

DRUGS (20)
  1. SEROQUEL [Suspect]
     Indication: DEPRESSION
     Route: 048
     Dates: start: 19980101, end: 20070601
  2. SEROQUEL [Suspect]
     Indication: BIPOLAR DISORDER
     Route: 048
     Dates: start: 19980101, end: 20070601
  3. SEROQUEL [Suspect]
     Route: 048
     Dates: start: 20050430
  4. SEROQUEL [Suspect]
     Route: 048
     Dates: start: 20050430
  5. RISPERDAL [Concomitant]
     Route: 065
  6. RESTORIL [Concomitant]
     Route: 065
  7. KLONOPIN [Concomitant]
     Route: 065
  8. DEPAKOTE [Concomitant]
     Route: 065
  9. ABILIFY [Concomitant]
     Route: 065
  10. AMBIEN [Concomitant]
     Route: 065
  11. GLUCOTROL [Concomitant]
     Route: 065
  12. PRINIVIL [Concomitant]
     Route: 065
  13. DESYREL [Concomitant]
     Route: 061
  14. HALDOL [Concomitant]
     Route: 048
  15. NAPROSYN [Concomitant]
     Route: 048
  16. ATIVAN [Concomitant]
     Route: 048
  17. HUMULIN R [Concomitant]
     Dosage: 10-20 UNITS (FLUCTUATING)
     Route: 065
  18. TORADOL [Concomitant]
     Dosage: 30-60 MG
     Route: 030
  19. PAXIL [Concomitant]
  20. ZOLOFT [Concomitant]

REACTIONS (10)
  - ALCOHOL ABUSE [None]
  - BACK PAIN [None]
  - BIPOLAR I DISORDER [None]
  - CELLULITIS [None]
  - DIABETIC COMPLICATION [None]
  - DRUG ABUSE [None]
  - INJURY [None]
  - SINUSITIS [None]
  - SUICIDAL IDEATION [None]
  - TYPE 2 DIABETES MELLITUS [None]
